FAERS Safety Report 19644397 (Version 1)
Quarter: 2021Q3

REPORT INFORMATION
  Report Type: Spontaneous
  Country: JP (occurrence: JP)
  Receive Date: 20210801
  Receipt Date: 20210801
  Transmission Date: 20211014
  Serious: Yes (Hospitalization)
  Sender: FDA-Public Use
  Company Number: JP-JNJFOC-20210763676

PATIENT
  Age: 7 Decade
  Sex: Male

DRUGS (6)
  1. CANAGLIFLOZIN [Suspect]
     Active Substance: CANAGLIFLOZIN
     Indication: PRODUCT USED FOR UNKNOWN INDICATION
     Dosage: 100 MILLIGRAM, QD
     Route: 048
  2. REPAGLINIDE. [Concomitant]
     Active Substance: REPAGLINIDE
     Route: 065
  3. DECADRON [Suspect]
     Active Substance: DEXAMETHASONE
     Route: 065
  4. VEKLURY [Concomitant]
     Active Substance: REMDESIVIR
     Route: 065
  5. OLUMIANT [Concomitant]
     Active Substance: BARICITINIB
     Route: 065
  6. VILDAGLIPTIN [Concomitant]
     Active Substance: VILDAGLIPTIN
     Route: 065

REACTIONS (2)
  - COVID-19 [Unknown]
  - Blood glucose increased [Unknown]
